FAERS Safety Report 23072622 (Version 1)
Quarter: 2023Q4

REPORT INFORMATION
  Report Type: Spontaneous
  Country: US (occurrence: None)
  Receive Date: 20231017
  Receipt Date: 20231017
  Transmission Date: 20240109
  Serious: Yes (Hospitalization, Other)
  Sender: FDA-Public Use
  Company Number: US-MICRO LABS LIMITED-ML2023-05826

PATIENT
  Age: 38 Year
  Sex: Female

DRUGS (3)
  1. DIPHENHYDRAMINE HYDROCHLORIDE [Suspect]
     Active Substance: DIPHENHYDRAMINE HYDROCHLORIDE
     Indication: Product used for unknown indication
     Dosage: 50?60 TABLETS OF DIPHENHYDRAMINE OF UNKNOWN DOSE WITHIN THE LAST 24 HOURS
  2. DIAZEPAM [Suspect]
     Active Substance: DIAZEPAM
     Indication: Product used for unknown indication
  3. VENLAFAXINE [Suspect]
     Active Substance: VENLAFAXINE HYDROCHLORIDE
     Indication: Product used for unknown indication
     Dosage: 150 MG EVERY MORNING AND 75 MG EVERY EVENING

REACTIONS (9)
  - Agitation [Unknown]
  - Mydriasis [Unknown]
  - Premature labour [Unknown]
  - Abdominal pain [Unknown]
  - Anxiety [Unknown]
  - Nausea [Unknown]
  - Urinary retention [Unknown]
  - Intentional overdose [Unknown]
  - Exposure during pregnancy [Unknown]
